FAERS Safety Report 25212171 (Version 1)
Quarter: 2025Q2

REPORT INFORMATION
  Report Type: Other
  Country: IE (occurrence: IE)
  Receive Date: 20250418
  Receipt Date: 20250418
  Transmission Date: 20250716
  Serious: Yes (Hospitalization, Other)
  Sender: ANI
  Company Number: IE-ANIPHARMA-022410

PATIENT
  Age: 26 Year
  Sex: Female

DRUGS (2)
  1. ZONISAMIDE [Suspect]
     Active Substance: ZONISAMIDE
     Indication: Partial seizures
  2. ZONISAMIDE [Suspect]
     Active Substance: ZONISAMIDE
     Indication: Partial seizures

REACTIONS (2)
  - Renal tubular acidosis [Recovering/Resolving]
  - Familial periodic paralysis [Recovering/Resolving]
